FAERS Safety Report 6862870-7 (Version None)
Quarter: 2010Q3

REPORT INFORMATION
  Report Type: 
  Country: None (occurrence: None)
  Receive Date: 20100721
  Receipt Date: 20100714
  Transmission Date: 20110219
  Serious: Yes (Death)
  Sender: FDA-Public Use
  Company Number: A0871267A

PATIENT
  Sex: Female
  Weight: 60 kg

DRUGS (1)
  1. SERETIDE [Suspect]
     Indication: RALES
     Dosage: 1PUFF PER DAY
     Route: 055
     Dates: start: 20020101, end: 20100223

REACTIONS (1)
  - CEREBROVASCULAR ACCIDENT [None]
